FAERS Safety Report 7145075-4 (Version None)
Quarter: 2010Q4

REPORT INFORMATION
  Report Type: 
  Country: None (occurrence: None)
  Receive Date: 20101208
  Receipt Date: 20101126
  Transmission Date: 20110411
  Serious: Yes (Other)
  Sender: FDA-Public Use
  Company Number: PHHY2010US81991

PATIENT
  Sex: Female
  Weight: 60.771 kg

DRUGS (1)
  1. EXJADE [Suspect]
     Indication: SERUM FERRITIN INCREASED
     Dosage: 1500 MG, QD
     Route: 048

REACTIONS (16)
  - BLOOD PRESSURE ABNORMAL [None]
  - CARDIAC MURMUR [None]
  - DIARRHOEA [None]
  - DYSPNOEA [None]
  - FATIGUE [None]
  - GASTROOESOPHAGEAL REFLUX DISEASE [None]
  - GLOMERULAR FILTRATION RATE DECREASED [None]
  - HEADACHE [None]
  - HEART VALVE REPLACEMENT [None]
  - HOT FLUSH [None]
  - HYPOAESTHESIA [None]
  - LIP DRY [None]
  - MUSCLE SPASMS [None]
  - MUSCULOSKELETAL DISCOMFORT [None]
  - PALLOR [None]
  - REFRACTORY ANAEMIA [None]
